FAERS Safety Report 21646540 (Version 1)
Quarter: 2022Q4

REPORT INFORMATION
  Report Type: Other
  Country: None (occurrence: US)
  Receive Date: 20221126
  Receipt Date: 20221126
  Transmission Date: 20230112
  Serious: Yes (Other)
  Sender: FDA-Public Use
  Company Number: US-B.Braun Medical Inc.-2135266

PATIENT
  Age: 28 Year
  Sex: Male

DRUGS (2)
  1. MAGNESIUM SULFATE IN DEXTROSE [Suspect]
     Active Substance: MAGNESIUM SULFATE
     Indication: Ventricular extrasystoles
  2. SODIUM BICARBONATE [Suspect]
     Active Substance: SODIUM BICARBONATE

REACTIONS (1)
  - Drug ineffective for unapproved indication [None]
